FAERS Safety Report 23548312 (Version 1)
Quarter: 2024Q1

REPORT INFORMATION
  Report Type: Spontaneous
  Country: US (occurrence: None)
  Receive Date: 20240220
  Receipt Date: 20240220
  Transmission Date: 20240410
  Serious: Yes (Hospitalization)
  Sender: FDA-Public Use
  Company Number: None

PATIENT
  Age: 58 Year
  Sex: Female
  Weight: 79.4 kg

DRUGS (1)
  1. XELODA [Suspect]
     Active Substance: CAPECITABINE
     Dates: end: 20240216

REACTIONS (5)
  - Chest pain [None]
  - Chest discomfort [None]
  - Back pain [None]
  - Arthralgia [None]
  - Troponin increased [None]

NARRATIVE: CASE EVENT DATE: 20240216
